FAERS Safety Report 6802751-8 (Version None)
Quarter: 2010Q2

REPORT INFORMATION
  Report Type: 
  Country: None (occurrence: None)
  Receive Date: 20100628
  Receipt Date: 20100621
  Transmission Date: 20101027
  Serious: Yes (Other)
  Sender: FDA-Public Use
  Company Number: JP-BRISTOL-MYERS SQUIBB COMPANY-14192678

PATIENT
  Age: 54 Year
  Sex: Female

DRUGS (2)
  1. BARACLUDE [Suspect]
     Indication: HEPATITIS B
     Route: 048
     Dates: start: 20071130
  2. AMLODIN [Concomitant]
     Indication: HYPERTENSION
     Dosage: 31MAR08 FORM:TABS
     Route: 048
     Dates: start: 20071130, end: 20091202

REACTIONS (2)
  - ANAEMIA [None]
  - DUODENAL ULCER [None]
